FAERS Safety Report 9580865 (Version 1)
Quarter: 2013Q4

REPORT INFORMATION
  Report Type: Spontaneous
  Country: US (occurrence: None)
  Receive Date: 20131001
  Receipt Date: 20131001
  Transmission Date: 20140711
  Serious: Yes (Disabling)
  Sender: FDA-Public Use
  Company Number: None

PATIENT
  Age: 55 Year
  Sex: Male
  Weight: 117.94 kg

DRUGS (1)
  1. ZARELTO [Suspect]
     Indication: PULMONARY THROMBOSIS
     Dosage: 1 TABLET
     Route: 048

REACTIONS (2)
  - Pruritus [None]
  - Rash [None]
